FAERS Safety Report 5732374-3 (Version None)
Quarter: 2008Q2

REPORT INFORMATION
  Report Type: 
  Country: None (occurrence: None)
  Receive Date: 20080508
  Receipt Date: 20080428
  Transmission Date: 20081010
  Serious: Yes (Hospitalization)
  Sender: FDA-Public Use
  Company Number: US-PFIZER INC-2008037166

PATIENT
  Age: 8 Month
  Sex: Male

DRUGS (2)
  1. PREDNISONE TAB [Suspect]
     Indication: HAEMANGIOMA
     Dosage: DAILY DOSE:12MG
     Route: 048
  2. PREDNISONE TAB [Suspect]
     Dosage: DAILY DOSE:9MG
     Route: 048

REACTIONS (1)
  - BENIGN INTRACRANIAL HYPERTENSION [None]
